FAERS Safety Report 6383286-6 (Version None)
Quarter: 2009Q4

REPORT INFORMATION
  Report Type: 
  Country: None (occurrence: None)
  Receive Date: 20091001
  Receipt Date: 20090929
  Transmission Date: 20100525
  Serious: Yes (Other)
  Sender: FDA-Public Use
  Company Number: US-RB-020577-09

PATIENT
  Age: 60 Year
  Sex: Female

DRUGS (4)
  1. SUBOXONE [Suspect]
     Route: 060
     Dates: start: 20090701, end: 20090906
  2. SUBOXONE [Suspect]
     Route: 060
     Dates: start: 20090907
  3. SUBOXONE [Suspect]
     Route: 060
     Dates: start: 20071001, end: 20090701
  4. SEROQUEL [Suspect]
     Dosage: DOSING DETAILS UNKNOWN
     Route: 065

REACTIONS (3)
  - CONTUSION [None]
  - DYSPHAGIA [None]
  - LOSS OF CONSCIOUSNESS [None]
